FAERS Safety Report 7449082-3 (Version None)
Quarter: 2011Q2

REPORT INFORMATION
  Report Type: 
  Country: None (occurrence: None)
  Receive Date: 20110502
  Receipt Date: 20100116
  Transmission Date: 20111010
  Serious: Yes (Death, Other)
  Sender: FDA-Public Use
  Company Number: US-BAYER-201011317NA

PATIENT
  Age: 67 Year
  Sex: Male
  Weight: 108.84 kg

DRUGS (23)
  1. GLYBURIDE [Concomitant]
     Dosage: 2.5 MG BEFORE BREAKFAST AND DINNER
     Route: 048
  2. HYDRODIURIL [Concomitant]
     Dosage: 50 MG DAILY
     Route: 048
  3. HEPARIN [Concomitant]
     Indication: ANGINA UNSTABLE
     Dosage: 25,000 UNITS/500ML TITRATE PER HEPARIN PROTOCOL
     Route: 042
  4. ZOCOR [Concomitant]
     Dosage: 40 MG DAILY
     Route: 048
  5. HEPARIN [Concomitant]
     Dosage: TITRATE PER PROTOCOL
     Route: 042
  6. INSULIN REGULAR [INSULIN PORCINE] [Concomitant]
     Dosage: SLIDING SCALE
     Route: 058
  7. LISINOPRIL [Concomitant]
     Dosage: UNK
     Dates: start: 19970101
  8. MORPHINE SULFATE [Concomitant]
     Dosage: 2-4 MG EVERY 2 HRS AS NEEDED
     Route: 042
  9. MORPHINE SULFATE [Concomitant]
     Dosage: 60 MG EVERY 12 HRS
     Route: 048
  10. NITROGLYCERIN [Concomitant]
     Dosage: TITRATE FOR CHEST PAIN
     Route: 042
  11. ACETYLSALICYLIC ACID SRT [Concomitant]
     Dosage: 325 MG DAILY
     Route: 048
  12. GLUCOPHAGE [Concomitant]
     Dosage: 1000 MG TWO TIMES DAILY
     Route: 048
  13. LEXAPRO [Concomitant]
     Dosage: 20 MG TWO TIMES A DAY
     Route: 048
  14. LASIX [Concomitant]
     Dosage: 10 MG
     Route: 042
     Dates: start: 20050822
  15. MS CONTIN [Concomitant]
     Dosage: 30 MG EVEY 8 HRS
     Route: 048
  16. ANCEF [Concomitant]
     Dosage: 2 GRAMS
     Route: 042
     Dates: start: 20050822, end: 20050822
  17. LOPRESSOR [Concomitant]
     Dosage: 25 MG EVERY 12 HRS
     Route: 048
     Dates: start: 19970101
  18. TRASYLOL [Suspect]
     Indication: CORONARY ARTERY BYPASS
     Dosage: 200 ML BOLUS
     Route: 042
     Dates: start: 20050822, end: 20050822
  19. ATIVAN [Concomitant]
     Dosage: 0.5 MG EVEY MORNING
     Route: 048
  20. EFFEXOR [Concomitant]
     Dosage: 20 MG DAILY
  21. HEPARIN [Concomitant]
     Dosage: 10,000 UNITS ONCE; 5,000 UNITS ONCE
     Route: 042
     Dates: start: 20050822
  22. INSULIN REGULAR [INSULIN PORCINE] [Concomitant]
     Dosage: 3 UNITS
     Route: 042
     Dates: start: 20050822, end: 20050822
  23. ZYLOPRIM [Concomitant]
     Dosage: 300 MG DAILY
     Route: 048

REACTIONS (14)
  - DEATH [None]
  - DEPRESSION [None]
  - INJURY [None]
  - PAIN [None]
  - CARDIAC DISORDER [None]
  - ORGAN FAILURE [None]
  - ANXIETY [None]
  - ANHEDONIA [None]
  - CEREBROVASCULAR ACCIDENT [None]
  - UNEVALUABLE EVENT [None]
  - RENAL INJURY [None]
  - RENAL FAILURE [None]
  - FEAR [None]
  - RENAL IMPAIRMENT [None]
